FAERS Safety Report 15617746 (Version 1)
Quarter: 2018Q4

REPORT INFORMATION
  Report Type: Spontaneous
  Country: ES (occurrence: ES)
  Receive Date: 20181114
  Receipt Date: 20181114
  Transmission Date: 20190205
  Serious: Yes (Other)
  Sender: FDA-Public Use
  Company Number: ES-BRISTOL-MYERS SQUIBB COMPANY-BMS-2018-102502

PATIENT
  Age: 71 Year
  Sex: Female

DRUGS (2)
  1. TRIGON DEPOT [Suspect]
     Active Substance: TRIAMCINOLONE ACETONIDE
     Indication: NASAL POLYPS
     Dosage: 1 DF, QD
     Route: 030
  2. EUTIROX [Concomitant]
     Active Substance: LEVOTHYROXINE SODIUM
     Indication: PRODUCT USED FOR UNKNOWN INDICATION
     Dosage: UNK
     Route: 065

REACTIONS (2)
  - Blood pressure increased [Unknown]
  - Cataract [Unknown]
